FAERS Safety Report 5359227-7 (Version None)
Quarter: 2007Q2

REPORT INFORMATION
  Report Type: 
  Country: None (occurrence: None)
  Receive Date: 20070615
  Receipt Date: 20070611
  Transmission Date: 20071010
  Serious: Yes (Life-Threatening, Other)
  Sender: FDA-Public Use
  Company Number: GB-ASTRAZENECA-2007GB01228

PATIENT
  Age: 70 Year
  Sex: Female
  Weight: 61.8 kg

DRUGS (11)
  1. OMEPRAZOLE [Suspect]
     Indication: ABDOMINAL DISCOMFORT
     Route: 048
     Dates: start: 20070518, end: 20070521
  2. ATENOLOL [Concomitant]
     Route: 048
     Dates: start: 20020101
  3. ATORVASTATIN CALCIUM [Concomitant]
     Route: 048
     Dates: start: 20020101
  4. CARBOPLATIN [Concomitant]
     Dates: start: 20070427
  5. CARBOPLATIN [Concomitant]
     Dates: start: 20070523
  6. CODEINE PHOSPHATE [Concomitant]
     Route: 048
     Dates: start: 20070518
  7. FRUSEMIDE [Concomitant]
     Route: 048
     Dates: start: 20020101
  8. GAVISCON [Concomitant]
     Route: 048
     Dates: start: 20070518, end: 20070524
  9. METOCLOPRAMIDE [Concomitant]
     Route: 048
     Dates: start: 20070401, end: 20070520
  10. OXYTETRACYCLINE [Concomitant]
     Indication: ROSACEA
     Route: 048
  11. PARACETAMOL [Concomitant]
     Route: 048
     Dates: start: 20020101

REACTIONS (1)
  - HEPATIC FUNCTION ABNORMAL [None]
